FAERS Safety Report 19328903 (Version 1)
Quarter: 2021Q2

REPORT INFORMATION
  Report Type: Spontaneous
  Country: CA (occurrence: CA)
  Receive Date: 20210528
  Receipt Date: 20210528
  Transmission Date: 20210717
  Serious: Yes (Other)
  Sender: FDA-Public Use
  Company Number: CA-TEVA-2021-CA-1915311

PATIENT
  Age: 51 Year

DRUGS (10)
  1. RITUXAN [Concomitant]
     Active Substance: RITUXIMAB
     Dosage: 1 CYCLE
     Route: 065
     Dates: start: 202101
  2. PREDNISONE. [Suspect]
     Active Substance: PREDNISONE
     Dosage: 25 MILLIGRAM DAILY;
     Route: 065
  3. PREDNISONE. [Suspect]
     Active Substance: PREDNISONE
     Dosage: 40 MILLIGRAM DAILY;
     Route: 065
     Dates: start: 2021
  4. METHOTREXATE SODIUM. [Concomitant]
     Active Substance: METHOTREXATE SODIUM
     Route: 058
     Dates: end: 202006
  5. RITUXAN [Concomitant]
     Active Substance: RITUXIMAB
     Dosage: 1 CYCLE
     Route: 065
     Dates: start: 202001
  6. HUMIRA [Concomitant]
     Active Substance: ADALIMUMAB
     Route: 058
     Dates: start: 202006
  7. HUMIRA [Concomitant]
     Active Substance: ADALIMUMAB
     Route: 058
     Dates: end: 2021
  8. PREDNISONE. [Suspect]
     Active Substance: PREDNISONE
     Indication: ARTHRITIS
     Route: 065
     Dates: start: 202002
  9. METHOTREXATE SODIUM. [Concomitant]
     Active Substance: METHOTREXATE SODIUM
     Dosage: 3.5714 MILLIGRAM DAILY;
     Route: 058
     Dates: start: 201807
  10. EFUDEX [Concomitant]
     Active Substance: FLUOROURACIL
     Indication: BASAL CELL CARCINOMA
     Route: 065
     Dates: start: 20210501

REACTIONS (5)
  - Disease recurrence [Unknown]
  - Cutaneous vasculitis [Unknown]
  - Psoriatic arthropathy [Unknown]
  - Asthma [Unknown]
  - Thyroid disorder [Unknown]

NARRATIVE: CASE EVENT DATE: 202104
